FAERS Safety Report 6850781-2 (Version None)
Quarter: 2010Q3

REPORT INFORMATION
  Report Type: 
  Country: None (occurrence: None)
  Receive Date: 20100716
  Receipt Date: 20071022
  Transmission Date: 20110219
  Serious: No
  Sender: FDA-Public Use
  Company Number: US-PFIZER INC-2007090064

PATIENT
  Sex: Female
  Weight: 60.909 kg

DRUGS (2)
  1. CHANTIX [Suspect]
     Indication: SMOKING CESSATION THERAPY
     Dates: start: 20071006
  2. ACIDOPHILUS [Concomitant]

REACTIONS (1)
  - IRRITABILITY [None]
